FAERS Safety Report 21604410 (Version 4)
Quarter: 2023Q1

REPORT INFORMATION
  Report Type: Spontaneous
  Country: ES (occurrence: ES)
  Receive Date: 20221116
  Receipt Date: 20230102
  Transmission Date: 20230417
  Serious: Yes (Hospitalization)
  Sender: FDA-Public Use
  Company Number: ES-LESVI-2022005253

PATIENT
  Age: 52 Year
  Sex: Male

DRUGS (22)
  1. DARUNAVIR [Interacting]
     Active Substance: DARUNAVIR
     Indication: HIV infection
     Dosage: 600 MG, Q12H
     Route: 065
     Dates: start: 20100824
  2. QUETIAPINE [Interacting]
     Active Substance: QUETIAPINE
     Indication: Antipsychotic therapy
     Dosage: 300 MG, Q12H
     Route: 065
     Dates: start: 20170426
  3. DULAGLUTIDE [Concomitant]
     Active Substance: DULAGLUTIDE
     Indication: Diabetes mellitus
     Dosage: 1.5 MG, QW (EVERY 7 DAYS)
     Route: 065
     Dates: start: 20190529
  4. DULAGLUTIDE [Concomitant]
     Active Substance: DULAGLUTIDE
     Indication: Diabetes prophylaxis
  5. INSULIN GLARGINE [Concomitant]
     Active Substance: INSULIN GLARGINE
     Indication: Diabetes mellitus
     Dosage: 60 IU, EVERY 24 HOURS
     Route: 065
     Dates: start: 20190527
  6. INSULIN GLARGINE [Concomitant]
     Active Substance: INSULIN GLARGINE
     Indication: Diabetes prophylaxis
  7. INSULIN ASPART [Concomitant]
     Active Substance: INSULIN ASPART
     Indication: Diabetes mellitus
     Dosage: 10 UI, EVERY 8 HOURS
     Route: 065
     Dates: start: 20200707
  8. INSULIN ASPART [Concomitant]
     Active Substance: INSULIN ASPART
     Indication: Diabetes prophylaxis
  9. LORMETAZEPAM [Concomitant]
     Active Substance: LORMETAZEPAM
     Indication: Hypnotherapy
     Dosage: 2 MG, Q24H
     Route: 065
     Dates: start: 20171216
  10. GABAPENTIN [Concomitant]
     Active Substance: GABAPENTIN
     Indication: Analgesic therapy
     Dosage: 600 MG, Q8H
     Route: 065
     Dates: start: 20211015
  11. METAMIZOLE [Concomitant]
     Active Substance: METAMIZOLE
     Indication: Analgesic therapy
     Dosage: 575 MG, Q8H
     Route: 065
     Dates: start: 20210707
  12. LOSARTAN [Concomitant]
     Active Substance: LOSARTAN
     Indication: Hypertension
     Dosage: 100 MG, Q24H
     Route: 065
     Dates: start: 20181013
  13. FENOFIBRATE [Concomitant]
     Active Substance: FENOFIBRATE
     Indication: Hyperlipidaemia
     Dosage: 145 MG, Q24H
     Route: 065
     Dates: start: 20200420
  14. FENOFIBRATE [Concomitant]
     Active Substance: FENOFIBRATE
     Indication: Lipids abnormal
  15. ROSUVASTATIN [Concomitant]
     Active Substance: ROSUVASTATIN
     Indication: Hyperlipidaemia
     Dosage: 5 MG, Q24H
     Route: 065
     Dates: start: 20180511
  16. ROSUVASTATIN [Concomitant]
     Active Substance: ROSUVASTATIN
     Indication: Lipids abnormal
  17. CLORAZEPATE DIPOTASSIUM [Concomitant]
     Active Substance: CLORAZEPATE DIPOTASSIUM
     Indication: Anxiolytic therapy
     Dosage: 15 MG, EVERY 4 AND HALF HOURS
     Route: 065
     Dates: start: 20190221
  18. ACETAMINOPHEN [Concomitant]
     Active Substance: ACETAMINOPHEN
     Indication: Analgesic therapy
     Dosage: 1 G, Q12H
     Route: 065
     Dates: start: 20210721
  19. ZOLPIDEM [Concomitant]
     Active Substance: ZOLPIDEM TARTRATE
     Indication: Hypnotherapy
     Dosage: 10 MG, Q24H
     Route: 065
     Dates: start: 20190313
  20. ETRAVIRINE [Concomitant]
     Active Substance: ETRAVIRINE
     Indication: HIV infection
     Dosage: 200 MG, Q24H
     Route: 065
     Dates: start: 20140527
  21. OMEPRAZOLE [Concomitant]
     Active Substance: OMEPRAZOLE
     Indication: Ulcer
     Dosage: 40 MG, Q24H
     Route: 065
     Dates: start: 20191127
  22. OMEPRAZOLE [Concomitant]
     Active Substance: OMEPRAZOLE
     Indication: Prophylaxis against gastrointestinal ulcer

REACTIONS (8)
  - Agitation [Recovered/Resolved]
  - Tachycardia [Recovered/Resolved]
  - Confusional state [Recovered/Resolved]
  - Drug interaction [Recovered/Resolved]
  - Nervousness [Recovered/Resolved]
  - Insomnia [Recovered/Resolved]
  - Restlessness [Recovered/Resolved]
  - Antipsychotic drug level increased [Unknown]
